FAERS Safety Report 4639857-8 (Version None)
Quarter: 2005Q2

REPORT INFORMATION
  Report Type: 
  Country: None (occurrence: None)
  Receive Date: 20050418
  Receipt Date: 20050405
  Transmission Date: 20051028
  Serious: Yes (Other)
  Sender: FDA-Public Use
  Company Number: 2005054830

PATIENT
  Age: 3 Year
  Sex: Male

DRUGS (2)
  1. AZITHROMYCIN [Suspect]
     Indication: EAR INFECTION
     Dosage: UNK (4.5 ML, 1 IN 1 D), ORAL
     Route: 048
     Dates: start: 20050325, end: 20050325
  2. AZITHROMYCIN [Suspect]
     Indication: EAR INFECTION
     Dosage: UNK (4.5 ML, 1 IN 1 D), ORAL
     Route: 048
     Dates: start: 20050326, end: 20050326

REACTIONS (6)
  - ABASIA [None]
  - BACK PAIN [None]
  - PAIN IN EXTREMITY [None]
  - RASH GENERALISED [None]
  - SERUM SICKNESS [None]
  - SWELLING [None]
